FAERS Safety Report 6820343-1 (Version None)
Quarter: 2010Q3

REPORT INFORMATION
  Report Type: 
  Country: None (occurrence: None)
  Receive Date: 20100707
  Receipt Date: 20100630
  Transmission Date: 20110219
  Serious: Yes (Other)
  Sender: FDA-Public Use
  Company Number: US-JNJCH-2010015668

PATIENT
  Age: 31 Year
  Sex: Male
  Weight: 104.3 kg

DRUGS (1)
  1. ZYRTEC-D 12 HOUR [Suspect]
     Indication: HYPERSENSITIVITY
     Dosage: TEXT:UNKNOWN
     Route: 048

REACTIONS (1)
  - HAEMATOCHEZIA [None]
